FAERS Safety Report 24654470 (Version 1)
Quarter: 2024Q4

REPORT INFORMATION
  Report Type: Spontaneous
  Country: US (occurrence: US)
  Receive Date: 20241122
  Receipt Date: 20241122
  Transmission Date: 20250115
  Serious: Yes (Hospitalization, Other)
  Sender: BRISTOL-MYERS SQUIBB COMPANY
  Company Number: US-BRISTOL-MYERS SQUIBB COMPANY-2024-179301

PATIENT
  Age: 81 Year
  Sex: Female

DRUGS (2)
  1. REVLIMID [Suspect]
     Active Substance: LENALIDOMIDE
     Indication: Plasma cell myeloma
     Dosage: QD
     Route: 048
     Dates: start: 20220311, end: 202410
  2. REVLIMID [Suspect]
     Active Substance: LENALIDOMIDE
     Dates: start: 202410

REACTIONS (2)
  - Cerebral infarction [Unknown]
  - Brain injury [Unknown]

NARRATIVE: CASE EVENT DATE: 20241001
